FAERS Safety Report 9885854 (Version 1)
Quarter: 2014Q1

REPORT INFORMATION
  Report Type: Report from Study
  Country: DE (occurrence: DE)
  Receive Date: 20140210
  Receipt Date: 20140210
  Transmission Date: 20141002
  Serious: Yes (Other)
  Sender: FDA-Public Use
  Company Number: DE-BRISTOL-MYERS SQUIBB COMPANY-20131355

PATIENT
  Age: 83 Year
  Sex: Female

DRUGS (3)
  1. ABATACEPT [Suspect]
     Indication: RHEUMATIC DISORDER
     Dosage: 125MG: JAN13
     Dates: start: 201208, end: 201301
  2. ETANERCEPT [Suspect]
     Indication: RHEUMATIC DISORDER
     Dosage: FEB09-AUG09
     Dates: start: 200902, end: 200908
  3. TOCILIZUMAB [Suspect]
     Indication: RHEUMATIC DISORDER
     Dosage: SEP09-JUN12
     Dates: start: 200909, end: 201206

REACTIONS (1)
  - Skin ulcer [Unknown]
